FAERS Safety Report 23596862 (Version 1)
Quarter: 2024Q1

REPORT INFORMATION
  Report Type: Spontaneous
  Country: GB (occurrence: GB)
  Receive Date: 20240305
  Receipt Date: 20240305
  Transmission Date: 20240409
  Serious: Yes (Life-Threatening, Disabling, Other)
  Sender: FDA-Public Use
  Company Number: None

PATIENT
  Age: 10 Year
  Sex: Male
  Weight: 20 kg

DRUGS (1)
  1. MONTELUKAST SODIUM [Suspect]
     Active Substance: MONTELUKAST SODIUM
     Indication: Asthma
     Dosage: UNK
     Route: 065

REACTIONS (9)
  - Medication error [Unknown]
  - Anxiety [Not Recovered/Not Resolved]
  - Head banging [Recovered/Resolved]
  - Depression [Not Recovered/Not Resolved]
  - Mood swings [Not Recovered/Not Resolved]
  - Suicide threat [Not Recovered/Not Resolved]
  - Food refusal [Not Recovered/Not Resolved]
  - Dermatillomania [Not Recovered/Not Resolved]
  - Panic attack [Not Recovered/Not Resolved]
